FAERS Safety Report 15099487 (Version 1)
Quarter: 2018Q2

REPORT INFORMATION
  Report Type: Spontaneous
  Country: US (occurrence: US)
  Receive Date: 20180611
  Receipt Date: 20180611
  Transmission Date: 20180711
  Serious: Yes (Hospitalization)
  Sender: FDA-Public Use
  Company Number: None

PATIENT
  Age: 75 Year
  Sex: Male

DRUGS (1)
  1. XELJANZ XR [Suspect]
     Active Substance: TOFACITINIB CITRATE
     Indication: RHEUMATOID ARTHRITIS
     Route: 048
     Dates: start: 20180206, end: 20180528

REACTIONS (6)
  - Red blood cell count decreased [None]
  - White blood cell count decreased [None]
  - Fatigue [None]
  - Swelling [None]
  - Platelet count decreased [None]
  - Asthenia [None]

NARRATIVE: CASE EVENT DATE: 20180604
